FAERS Safety Report 8256270 (Version 2)
Quarter: 2015Q3

REPORT INFORMATION
  Report Type: Spontaneous
  Country: FR (occurrence: FR)
  Receive Date: 20111114
  Receipt Date: 20150923
  Transmission Date: 20151125
  Serious: Yes (Hospitalization)
  Sender: FDA-Public Use
  Company Number: 125780

PATIENT
  Age: 54 Year
  Sex: Female

DRUGS (22)
  1. DOXORUBICIN [Concomitant]
     Active Substance: DOXORUBICIN
     Indication: ACUTE MYELOID LEUKAEMIA
     Route: 065
     Dates: start: 20100525, end: 20100601
  2. EMEND [Concomitant]
     Active Substance: APREPITANT
     Indication: ADJUVANT THERAPY
     Route: 065
     Dates: start: 20100525, end: 20100601
  3. AMIKACIN [Concomitant]
     Active Substance: AMIKACIN
     Route: 065
     Dates: start: 20100610, end: 20100614
  4. TIENAM [Concomitant]
     Active Substance: CILASTATIN SODIUM\IMIPENEM
     Indication: PYREXIA
     Route: 065
     Dates: start: 20100525, end: 20100601
  5. CERUBIDINE [Suspect]
     Active Substance: DAUNORUBICIN HYDROCHLORIDE
     Indication: ACUTE MYELOID LEUKAEMIA
     Route: 042
     Dates: start: 20100526, end: 20100528
  6. ARACYTINE [Suspect]
     Active Substance: CYTARABINE
     Indication: ACUTE MYELOID LEUKAEMIA
     Route: 042
     Dates: start: 20100526, end: 20100601
  7. ZOPHREN [Concomitant]
     Active Substance: ONDANSETRON
     Indication: ADJUVANT THERAPY
     Route: 065
     Dates: start: 20100525, end: 20100601
  8. EMEND [Concomitant]
     Active Substance: APREPITANT
     Route: 065
     Dates: start: 20100610, end: 20100614
  9. TOBRADEX [Concomitant]
     Active Substance: DEXAMETHASONE\TOBRAMYCIN
     Indication: ADJUVANT THERAPY
     Route: 065
     Dates: start: 20100525, end: 20100601
  10. TAZOCILLINE [Concomitant]
     Active Substance: PIPERACILLIN SODIUM\TAZOBACTAM SODIUM
     Route: 065
     Dates: start: 20100610, end: 20100614
  11. VANCOMYCIN [Concomitant]
     Active Substance: VANCOMYCIN
     Indication: PYREXIA
     Route: 065
     Dates: start: 20100525, end: 20100601
  12. AMIKACIN [Concomitant]
     Active Substance: AMIKACIN
     Indication: PYREXIA
     Route: 065
     Dates: start: 20100525, end: 20100601
  13. TIENAM [Concomitant]
     Active Substance: CILASTATIN SODIUM\IMIPENEM
     Route: 065
     Dates: start: 20100610, end: 20100614
  14. ZOPHREN [Concomitant]
     Active Substance: ONDANSETRON
     Route: 065
     Dates: start: 20100610, end: 20100614
  15. TOBRADEX [Concomitant]
     Active Substance: DEXAMETHASONE\TOBRAMYCIN
     Route: 065
     Dates: start: 20100610, end: 20100614
  16. NOXAFIL [Concomitant]
     Active Substance: POSACONAZOLE
     Indication: ADJUVANT THERAPY
     Route: 065
     Dates: start: 20100525, end: 20100601
  17. AMSALYO [Concomitant]
     Active Substance: AMSACRINE
     Indication: ADJUVANT THERAPY
     Route: 065
     Dates: start: 20100610, end: 20100612
  18. NOXAFIL [Concomitant]
     Active Substance: POSACONAZOLE
     Route: 065
     Dates: start: 20100610, end: 20100614
  19. TAZOCILLINE [Concomitant]
     Active Substance: PIPERACILLIN SODIUM\TAZOBACTAM SODIUM
     Indication: PYREXIA
     Route: 065
     Dates: start: 20100525, end: 20100601
  20. ARACYTINE [Suspect]
     Active Substance: CYTARABINE
     Route: 042
     Dates: start: 20100610, end: 20100614
  21. VANCOMYCIN [Concomitant]
     Active Substance: VANCOMYCIN
     Route: 065
     Dates: start: 20100610, end: 20100614
  22. CIFLOX [Concomitant]
     Active Substance: CIPROFLOXACIN
     Indication: PYREXIA
     Route: 065

REACTIONS (1)
  - Encephalitis [Recovered/Resolved]

NARRATIVE: CASE EVENT DATE: 20100615
